FAERS Safety Report 17205694 (Version 2)
Quarter: 2020Q1

REPORT INFORMATION
  Report Type: Spontaneous
  Country: IL (occurrence: IL)
  Receive Date: 20191227
  Receipt Date: 20200214
  Transmission Date: 20200409
  Serious: Yes (Hospitalization, Other)
  Sender: FDA-Public Use
  Company Number: IL-REGENERON PHARMACEUTICALS, INC.-2019-74504

PATIENT

DRUGS (2)
  1. EYLEA [Suspect]
     Active Substance: AFLIBERCEPT
     Indication: NEOVASCULAR AGE-RELATED MACULAR DEGENERATION
     Dosage: UNKNOWN TOTAL NUMBER OS INJECTIONS
  2. EYLEA [Suspect]
     Active Substance: AFLIBERCEPT
     Dosage: BOTH EYES, LAST INJECTION RECEIVED
     Dates: start: 20191208, end: 20191208

REACTIONS (2)
  - Endophthalmitis [Unknown]
  - Blindness [Unknown]

NARRATIVE: CASE EVENT DATE: 20191211
